FAERS Safety Report 5866440-9 (Version None)
Quarter: 2008Q3

REPORT INFORMATION
  Report Type: 
  Country: None (occurrence: None)
  Receive Date: 20080827
  Receipt Date: 20080512
  Transmission Date: 20090109
  Serious: Yes (Hospitalization)
  Sender: FDA-Public Use
  Company Number: TPA2008A00689

PATIENT
  Sex: Female

DRUGS (1)
  1. DUETACT [Suspect]
     Indication: DRUG USE FOR UNKNOWN INDICATION
     Dosage: HALF TABLET 30 MG/2 MG, 1 IN 1 D, PER ORAL
     Route: 048

REACTIONS (1)
  - HYPOGLYCAEMIA [None]
